FAERS Safety Report 11870760 (Version 2)
Quarter: 2016Q1

REPORT INFORMATION
  Report Type: Spontaneous
  Country: ES (occurrence: None)
  Receive Date: 20151224
  Receipt Date: 20160201
  Transmission Date: 20160526
  Serious: Yes (Disabling)
  Sender: FDA-Public Use
  Company Number: ES-ALSI-201500324

PATIENT
  Sex: Female

DRUGS (1)
  1. OXIGENO MEDICINAL GAS GASMEDI 99.5% GAS COMPRIMIDO MEDICINAL OXYGEN [Suspect]
     Active Substance: OXYGEN
     Dosage: RESPIRATORY
     Route: 055
     Dates: start: 20151201, end: 20151201

REACTIONS (2)
  - Product quality issue [None]
  - Limb crushing injury [None]

NARRATIVE: CASE EVENT DATE: 20151201
